FAERS Safety Report 15284012 (Version 1)
Quarter: 2018Q4

REPORT INFORMATION
  Report Type: Spontaneous
  Country: NL (occurrence: NL)
  Receive Date: 20180816
  Receipt Date: 20180816
  Transmission Date: 20190204
  Serious: Yes (Other)
  Sender: FDA-Public Use
  Company Number: NL-TEVA-2018-NL-941446

PATIENT
  Sex: Male

DRUGS (7)
  1. CRESTOR [Concomitant]
     Active Substance: ROSUVASTATIN CALCIUM
     Dosage: 10MG
  2. NIFEDIPINE 10MG [Concomitant]
     Dosage: 10MG
  3. BICALUTAMIDE 50MG [Concomitant]
     Dosage: 50MG
  4. EZETROL 10MG [Concomitant]
     Active Substance: EZETIMIBE
     Dosage: 10MG
  5. FINASTERIDE 5MG [Concomitant]
     Active Substance: FINASTERIDE
     Dosage: 5MG
  6. TELMISARTAN 40MG TORRENT [Suspect]
     Active Substance: TELMISARTAN
     Indication: HYPERTENSION
     Dosage: 40MG
     Route: 065
  7. ALLOPURINOL 300MG [Concomitant]
     Active Substance: ALLOPURINOL
     Dosage: 300MG

REACTIONS (5)
  - Diarrhoea [Recovered/Resolved]
  - Asthenia [Recovered/Resolved]
  - Respiratory tract infection [Recovered/Resolved]
  - Myalgia [Recovered/Resolved]
  - Dyspnoea [Recovered/Resolved]
